FAERS Safety Report 12167538 (Version 2)
Quarter: 2016Q2

REPORT INFORMATION
  Report Type: Spontaneous
  Country: US (occurrence: US)
  Receive Date: 20160310
  Receipt Date: 20160422
  Transmission Date: 20160815
  Serious: No
  Sender: FDA-Public Use
  Company Number: US-GLAXOSMITHKLINE-US2016032382

PATIENT
  Sex: Female

DRUGS (11)
  1. TANZEUM [Suspect]
     Active Substance: ALBIGLUTIDE
     Indication: PRODUCT USED FOR UNKNOWN INDICATION
     Dosage: 30 MG, WE
     Route: 042
     Dates: start: 201601
  2. LANTUS [Concomitant]
     Active Substance: INSULIN GLARGINE
  3. ATENOLOL. [Concomitant]
     Active Substance: ATENOLOL
  4. CRESTOR [Concomitant]
     Active Substance: ROSUVASTATIN CALCIUM
  5. BUPROPION. [Concomitant]
     Active Substance: BUPROPION
  6. PAROXETIN [Concomitant]
     Active Substance: PAROXETINE HYDROCHLORIDE
  7. ALPRAZOLAM. [Concomitant]
     Active Substance: ALPRAZOLAM
  8. ASPIRIN (BABY) [Concomitant]
     Active Substance: ASPIRIN
  9. NOVOLOG [Concomitant]
     Active Substance: INSULIN ASPART
  10. VITAMIN D3 [Concomitant]
     Active Substance: CHOLECALCIFEROL
  11. ALEVE [Concomitant]
     Active Substance: NAPROXEN SODIUM

REACTIONS (5)
  - Hypersomnia [Recovered/Resolved]
  - Fatigue [Recovered/Resolved]
  - Blood glucose decreased [Recovered/Resolved]
  - Malaise [Recovered/Resolved]
  - Device use error [Recovered/Resolved]

NARRATIVE: CASE EVENT DATE: 20160229
